FAERS Safety Report 4963548-7 (Version None)
Quarter: 2006Q1

REPORT INFORMATION
  Report Type: 
  Country: None (occurrence: None)
  Receive Date: 20060330
  Receipt Date: 20060321
  Transmission Date: 20060701
  Serious: Yes (Hospitalization)
  Sender: FDA-Public Use
  Company Number: 2006040733

PATIENT
  Age: 48 Year
  Sex: Female

DRUGS (4)
  1. AMLODIPINE [Suspect]
     Indication: HYPERTENSION
     Dosage: (QD INTERVAL: EVERY DAY), ORAL
     Route: 048
     Dates: start: 20060201
  2. TRANDOLAPRIL [Concomitant]
  3. VERAPAMIL [Concomitant]
  4. NORMODIPIN (AMLODIPINE) [Concomitant]

REACTIONS (4)
  - BREAST CYST [None]
  - BREAST HAEMORRHAGE [None]
  - FIBROCYSTIC BREAST DISEASE [None]
  - MAMMARY DUCT ECTASIA [None]
